FAERS Safety Report 6998589-1 (Version None)
Quarter: 2010Q3

REPORT INFORMATION
  Report Type: 
  Country: None (occurrence: None)
  Receive Date: 20100920
  Receipt Date: 20090721
  Transmission Date: 20110219
  Serious: Yes (Other)
  Sender: FDA-Public Use
  Company Number: US-ASTRAZENECA-2007UW05880

PATIENT
  Sex: Male

DRUGS (5)
  1. SEROQUEL [Suspect]
     Dosage: 25 MG TWO TABLETS AT BEDTIME
     Route: 048
     Dates: start: 20030403
  2. LAMICTAL [Concomitant]
     Route: 048
     Dates: start: 20030403
  3. TRILEPTAL [Concomitant]
     Dosage: 600 MG 1 AND 1/2 TABLET IN THE MORNING AT 1 TABLET AT NIGHT
     Route: 048
     Dates: start: 20030403
  4. SINGULAIR [Concomitant]
     Route: 048
     Dates: start: 20030423
  5. TOPAMAX [Concomitant]
     Dosage: 25 MG TWO TABLETS IN MORNING AND 1 AT DINNER
     Route: 048
     Dates: start: 20030423

REACTIONS (3)
  - DIABETES MELLITUS [None]
  - KETOACIDOSIS [None]
  - PANCREATITIS [None]
